FAERS Safety Report 10694656 (Version 1)
Quarter: 2015Q1

REPORT INFORMATION
  Report Type: Spontaneous
  Country: US (occurrence: None)
  Receive Date: 20150105
  Receipt Date: 20150105
  Transmission Date: 20150721
  Serious: No
  Sender: FDA-Public Use
  Company Number: None

PATIENT
  Age: 42 Year
  Sex: Female
  Weight: 74.84 kg

DRUGS (1)
  1. CRESTOR [Suspect]
     Active Substance: ROSUVASTATIN CALCIUM
     Indication: BLOOD CHOLESTEROL INCREASED
     Dosage: 1 PILL, ONCE DAILY, TAKEN BY MOUTH
     Route: 048

REACTIONS (10)
  - Pain [None]
  - Muscular weakness [None]
  - Myalgia [None]
  - Activities of daily living impaired [None]
  - Anxiety [None]
  - Fatigue [None]
  - Suicidal ideation [None]
  - Confusional state [None]
  - Disturbance in attention [None]
  - Depression [None]
